FAERS Safety Report 5470528-4 (Version None)
Quarter: 2007Q3

REPORT INFORMATION
  Report Type: 
  Country: None (occurrence: None)
  Receive Date: 20070927
  Receipt Date: 20070927
  Transmission Date: 20080115
  Serious: No
  Sender: FDA-Public Use
  Company Number: None

PATIENT

DRUGS (1)
  1. LAFAYETTE LIQUID BAROSPERSE LAFAYETTE -TYCO/MALLINCKRODT- [Suspect]
     Indication: DIAGNOSTIC PROCEDURE
     Dosage: PO
     Route: 048
     Dates: start: 20070910, end: 20070914

REACTIONS (2)
  - BURNING SENSATION [None]
  - PHARMACEUTICAL PRODUCT COMPLAINT [None]
